FAERS Safety Report 15504463 (Version 1)
Quarter: 2018Q4

REPORT INFORMATION
  Report Type: Spontaneous
  Country: US (occurrence: US)
  Receive Date: 20181009
  Receipt Date: 20181009
  Transmission Date: 20190205
  Serious: Yes (Disabling)
  Sender: FDA-Public Use
  Company Number: None

PATIENT
  Age: 28 Year
  Sex: Male
  Weight: 74.25 kg

DRUGS (3)
  1. MELATONIN [Concomitant]
     Active Substance: MELATONIN
  2. LEXAPRO [Suspect]
     Active Substance: ESCITALOPRAM OXALATE
     Indication: DEPRESSION
     Dosage: ?          QUANTITY:1 CAPSULE(S);?
     Route: 048
  3. MULTI VITAMINS [Concomitant]
     Active Substance: VITAMINS

REACTIONS (12)
  - Withdrawal syndrome [None]
  - Chest pain [None]
  - Obsessive-compulsive disorder [None]
  - Muscle twitching [None]
  - Muscle spasms [None]
  - Testicular pain [None]
  - Anxiety [None]
  - Eye pain [None]
  - Depression [None]
  - Fear [None]
  - Depersonalisation/derealisation disorder [None]
  - Heart rate increased [None]

NARRATIVE: CASE EVENT DATE: 20090802
